FAERS Safety Report 6860951-5 (Version None)
Quarter: 2010Q3

REPORT INFORMATION
  Report Type: 
  Country: None (occurrence: None)
  Receive Date: 20100715
  Receipt Date: 20100707
  Transmission Date: 20110219
  Serious: Yes (Other)
  Sender: FDA-Public Use
  Company Number: 8037207

PATIENT
  Sex: Female
  Weight: 65 kg

DRUGS (5)
  1. CERTOLIZUMAB PEGOL (CDP870) [Suspect]
     Indication: CROHN'S DISEASE
     Dosage: (400 MG 1X/2 WEEKS, - NR OF DOSES :3 SUBCUTANEOUS), (400 MG, ONCE MONTHLY SUBCUTANEOUS)
     Route: 058
     Dates: start: 20041021, end: 20041206
  2. CERTOLIZUMAB PEGOL (CDP870) [Suspect]
     Indication: CROHN'S DISEASE
     Dosage: (400 MG 1X/2 WEEKS, - NR OF DOSES :3 SUBCUTANEOUS), (400 MG, ONCE MONTHLY SUBCUTANEOUS)
     Route: 058
     Dates: start: 20041206, end: 20050408
  3. CERTOLIZUMAB PEGOL (CDP870) [Suspect]
     Indication: CROHN'S DISEASE
     Dosage: (400 MG 1X/2 WEEKS, - NR OF DOSES :3 SUBCUTANEOUS), (400 MG, ONCE MONTHLY SUBCUTANEOUS)
     Route: 058
     Dates: end: 20080825
  4. AZAPRESS [Concomitant]
  5. TRIODENE [Concomitant]

REACTIONS (3)
  - ABORTION SPONTANEOUS [None]
  - DRUG EXPOSURE DURING PREGNANCY [None]
  - PREGNANCY ON ORAL CONTRACEPTIVE [None]
